FAERS Safety Report 12460471 (Version 1)
Quarter: 2016Q2

REPORT INFORMATION
  Report Type: Spontaneous
  Country: TW (occurrence: TW)
  Receive Date: 20160613
  Receipt Date: 20160613
  Transmission Date: 20160815
  Serious: Yes (Hospitalization)
  Sender: FDA-Public Use
  Company Number: TW-ELI_LILLY_AND_COMPANY-TW201606002258

PATIENT
  Sex: Female

DRUGS (2)
  1. FORTEO [Suspect]
     Active Substance: TERIPARATIDE
     Indication: OSTEOPOROSIS
     Dosage: UNK, UNKNOWN
     Route: 065
     Dates: start: 201605
  2. FORTEO [Suspect]
     Active Substance: TERIPARATIDE
     Indication: SPONDYLOLISTHESIS

REACTIONS (1)
  - Benign lung neoplasm [Unknown]

NARRATIVE: CASE EVENT DATE: 20160520
